FAERS Safety Report 8947829 (Version 1)
Quarter: 2012Q4

REPORT INFORMATION
  Report Type: Spontaneous
  Country: US (occurrence: None)
  Receive Date: 20121203
  Receipt Date: 20121203
  Transmission Date: 20130627
  Serious: Yes (Other)
  Sender: FDA-Public Use
  Company Number: None

PATIENT
  Age: 65 Year
  Sex: Female

DRUGS (1)
  1. SYNVISC-ONE [Suspect]
     Indication: OSTEOPOROSIS
     Dosage: 48MG/6ML ONCE INTRA-ARTICULAR
     Route: 014
     Dates: start: 20121120, end: 20121120

REACTIONS (3)
  - Oedema peripheral [None]
  - Pain in extremity [None]
  - Ill-defined disorder [None]
